FAERS Safety Report 10339556 (Version 1)
Quarter: 2014Q3

REPORT INFORMATION
  Report Type: Spontaneous
  Country: CH (occurrence: CH)
  Receive Date: 20140724
  Receipt Date: 20140724
  Transmission Date: 20150326
  Serious: Yes (Hospitalization)
  Sender: FDA-Public Use
  Company Number: PHHY2014CH089172

PATIENT
  Age: 70 Year
  Sex: Male

DRUGS (12)
  1. TORASEM [Concomitant]
     Active Substance: TORSEMIDE
  2. DUPHALAC [Concomitant]
     Active Substance: LACTULOSE
  3. CLOPIN ECO [Suspect]
     Active Substance: CLOZAPINE
     Indication: AKINESIA
     Dosage: 12.5 MG, QD
     Route: 048
     Dates: start: 2014, end: 20140402
  4. REMERON [Interacting]
     Active Substance: MIRTAZAPINE
     Dosage: 15 MG, QD
     Route: 048
     Dates: start: 2014, end: 20140402
  5. AKINETON [Interacting]
     Active Substance: BIPERIDEN HYDROCHLORIDE
     Indication: AKINESIA
     Dosage: 4 MG, QD
     Route: 048
     Dates: start: 2014, end: 20140402
  6. PREDNISON [Concomitant]
     Active Substance: PREDNISONE
  7. ZYMAFLUOR [Concomitant]
     Active Substance: SODIUM FLUORIDE
  8. MADOPAR [Concomitant]
     Active Substance: BENSERAZIDE HYDROCHLORIDE\LEVODOPA
  9. DAFALGAN [Concomitant]
     Active Substance: ACETAMINOPHEN
  10. BILOL [Concomitant]
     Active Substance: BISOPROLOL
  11. VI-DE 3 [Concomitant]
  12. FENTANYL. [Interacting]
     Active Substance: FENTANYL
     Indication: BACK PAIN
     Dosage: 25 UG, Q72H
     Route: 062
     Dates: start: 201403, end: 201404

REACTIONS (3)
  - Aggression [Recovered/Resolved]
  - Confusional state [Recovered/Resolved]
  - Delirium [Recovered/Resolved]

NARRATIVE: CASE EVENT DATE: 201403
